FAERS Safety Report 13134358 (Version 1)
Quarter: 2017Q1

REPORT INFORMATION
  Report Type: Report from Study
  Country: IT (occurrence: IT)
  Receive Date: 20170120
  Receipt Date: 20170120
  Transmission Date: 20170428
  Serious: Yes (Other)
  Sender: FDA-Public Use
  Company Number: IT-JNJFOC-20161224931

PATIENT
  Age: 85 Year
  Sex: Male

DRUGS (1)
  1. IMBRUVICA [Suspect]
     Active Substance: IBRUTINIB
     Indication: CHRONIC LYMPHOCYTIC LEUKAEMIA
     Dosage: EVERY 6 HOURS
     Route: 048

REACTIONS (9)
  - Off label use [Unknown]
  - Diarrhoea [Unknown]
  - Haemorrhage [Unknown]
  - Inappropriate schedule of drug administration [Unknown]
  - Erythema [Unknown]
  - Pain in extremity [Unknown]
  - Tinnitus [Unknown]
  - Petechiae [Unknown]
  - Cough [Unknown]
